FAERS Safety Report 4715264-4 (Version None)
Quarter: 2005Q3

REPORT INFORMATION
  Report Type: 
  Country: None (occurrence: None)
  Receive Date: 20050715
  Receipt Date: 20050708
  Transmission Date: 20060218
  Serious: Yes (Other)
  Sender: FDA-Public Use
  Company Number: PHBS2005NZ09807

PATIENT
  Age: 25 Year
  Sex: Female

DRUGS (1)
  1. CLOZARIL [Suspect]
     Indication: ACCIDENTAL EXPOSURE

REACTIONS (8)
  - ACCIDENTAL EXPOSURE [None]
  - DERMATITIS CONTACT [None]
  - ECZEMA [None]
  - ERYTHEMA [None]
  - OEDEMA MOUTH [None]
  - RASH ERYTHEMATOUS [None]
  - SWELLING [None]
  - SWELLING FACE [None]
